FAERS Safety Report 22140504 (Version 1)
Quarter: 2023Q1

REPORT INFORMATION
  Report Type: Spontaneous
  Country: RO (occurrence: RO)
  Receive Date: 20230327
  Receipt Date: 20230327
  Transmission Date: 20230418
  Serious: Yes (Hospitalization, Other)
  Sender: FDA-Public Use
  Company Number: RO-MLMSERVICE-2023031041575821

PATIENT
  Age: 73 Year
  Sex: Female

DRUGS (6)
  1. VANCOMYCIN [Interacting]
     Active Substance: VANCOMYCIN
     Indication: Endocarditis enterococcal
     Dosage: DOSES ADJUSTED TO RENAL FUNCTION
  2. ACENOCOUMAROL [Interacting]
     Active Substance: ACENOCOUMAROL
     Indication: Anticoagulant therapy
     Route: 048
  3. IMIPENEM AND CILASTATIN [Interacting]
     Active Substance: CILASTATIN SODIUM\IMIPENEM
     Indication: Endocarditis enterococcal
     Dosage: DOSES ADJUSTED TO RENAL FUNCTION
  4. LEVOTHYROXINE [Concomitant]
     Active Substance: LEVOTHYROXINE
  5. CARVEDILOL [Concomitant]
     Active Substance: CARVEDILOL
  6. CANDESARTAN [Concomitant]
     Active Substance: CANDESARTAN

REACTIONS (5)
  - Anaemia [Recovered/Resolved]
  - Drug interaction [Unknown]
  - Epistaxis [Recovered/Resolved]
  - Anticoagulation drug level above therapeutic [Recovered/Resolved]
  - Thrombocytopenia [Recovered/Resolved]
